FAERS Safety Report 8159075-9 (Version None)
Quarter: 2012Q1

REPORT INFORMATION
  Report Type: 
  Country: None (occurrence: None)
  Receive Date: 20120223
  Receipt Date: 20120220
  Transmission Date: 20120608
  Serious: Yes (Other)
  Sender: FDA-Public Use
  Company Number: ZA-PFIZER INC-2012046429

PATIENT
  Age: 91 Year
  Sex: Male

DRUGS (3)
  1. TEGRETOL [Concomitant]
     Indication: MUSCULOSKELETAL PAIN
     Dosage: UNK
     Route: 048
  2. LYRICA [Suspect]
     Indication: PAIN IN EXTREMITY
     Dosage: 75 MG, 1X/DAY (AT NIGHT)
     Route: 048
     Dates: start: 20120101
  3. LYRICA [Suspect]
     Indication: BURNING SENSATION

REACTIONS (7)
  - SWOLLEN TONGUE [None]
  - SOMNOLENCE [None]
  - RESPIRATORY TRACT HAEMORRHAGE [None]
  - URINARY INCONTINENCE [None]
  - DYSARTHRIA [None]
  - CONFUSIONAL STATE [None]
  - DIZZINESS [None]
